FAERS Safety Report 5182679-2 (Version None)
Quarter: 2006Q4

REPORT INFORMATION
  Report Type: 
  Country: None (occurrence: None)
  Receive Date: 20061220
  Receipt Date: 20061114
  Transmission Date: 20070319
  Serious: Yes (Life-Threatening, Hospitalization)
  Sender: FDA-Public Use
  Company Number: PHNU2006DE03755

PATIENT
  Age: 73 Year
  Sex: Male
  Weight: 71 kg

DRUGS (2)
  1. EXJADE [Suspect]
     Indication: HAEMOSIDEROSIS
     Dosage: 1500 MG/DAY
     Route: 048
     Dates: start: 20061025, end: 20061106
  2. TRANSFUSIONS [Concomitant]
     Indication: ANAEMIA
     Route: 065

REACTIONS (10)
  - AGRANULOCYTOSIS [None]
  - BODY TEMPERATURE INCREASED [None]
  - CONDITION AGGRAVATED [None]
  - DIARRHOEA [None]
  - ECZEMA [None]
  - EMPYEMA [None]
  - LEUKOPENIA [None]
  - PYREXIA [None]
  - RASH [None]
  - SEPSIS [None]
